FAERS Safety Report 7298083-7 (Version None)
Quarter: 2011Q1

REPORT INFORMATION
  Report Type: 
  Country: None (occurrence: None)
  Receive Date: 20110217
  Receipt Date: 20110209
  Transmission Date: 20110831
  Serious: Yes (Hospitalization, Disabling)
  Sender: FDA-Public Use
  Company Number: PHFR2011GB01266

PATIENT
  Age: 77 Year
  Sex: Female

DRUGS (9)
  1. ACLASTA [Suspect]
     Indication: OSTEOPOROSIS
     Dosage: 5 MG
     Route: 042
     Dates: start: 20101014
  2. SERETIDE [Concomitant]
  3. TIOTROPIUM BROMIDE [Concomitant]
  4. CITALOPRAM [Concomitant]
     Dosage: 30 MG
  5. SIMVASTATIN [Concomitant]
     Dosage: 20 MG
  6. CLOPIDOGREL [Concomitant]
     Dosage: 75 MG
  7. SOLIFENACIN [Concomitant]
  8. CANDESARTAN [Concomitant]
     Dosage: 8 MG
  9. FOLIC ACID [Concomitant]
     Dosage: 5 MG

REACTIONS (7)
  - ALOPECIA [None]
  - MYALGIA [None]
  - ACROCHORDON [None]
  - EMOTIONAL DISTRESS [None]
  - HEADACHE [None]
  - HYPERKERATOSIS [None]
  - DYSPNOEA [None]
